FAERS Safety Report 9146429 (Version 2)
Quarter: 2013Q1

REPORT INFORMATION
  Report Type: Spontaneous
  Country: PH (occurrence: PH)
  Receive Date: 20130307
  Receipt Date: 20130326
  Transmission Date: 20140127
  Serious: Yes (Other)
  Sender: FDA-Public Use
  Company Number: PH-ABBOTT-13P-128-1055136-00

PATIENT
  Age: 38 Year
  Sex: Female
  Weight: 52 kg

DRUGS (11)
  1. CHIROCAINE [Suspect]
     Indication: EPIDURAL ANAESTHESIA
     Dosage: 7CC 1 HR BEFORE END OF SURGERY
     Route: 008
     Dates: start: 20130223, end: 20130223
  2. CHIROCAINE [Suspect]
     Indication: HYSTERECTOMY
  3. CHIROCAINE [Suspect]
     Indication: ADHESIOLYSIS
  4. CHIROCAINE [Suspect]
     Indication: EXPLORATIVE LAPAROTOMY
  5. SENSORCAINE [Suspect]
     Indication: EPIDURAL ANAESTHESIA
     Dosage: 20 CC DAILY, TWO DOSES
     Route: 008
  6. SENSORCAINE [Suspect]
     Indication: HYSTERECTOMY
     Dosage: 20 CC DAILY, TWO DOSES
     Route: 008
  7. SENSORCAINE [Suspect]
     Indication: ADHESIOLYSIS
  8. SENSORCAINE [Suspect]
     Indication: EXPLORATIVE LAPAROTOMY
  9. FENTANYL [Concomitant]
     Indication: ANALGESIC THERAPY
     Dosage: 1 CC DAILY
     Route: 042
  10. PARECOXIB [Concomitant]
     Indication: ANALGESIC THERAPY
     Route: 042
  11. MORPHINE [Concomitant]
     Indication: ANALGESIC THERAPY
     Dosage: 2.8 MG DAILY
     Route: 042

REACTIONS (3)
  - Neuromuscular block prolonged [Recovered/Resolved]
  - Therapeutic response unexpected [Recovered/Resolved]
  - Pain [Recovered/Resolved]
